FAERS Safety Report 8997355 (Version 1)
Quarter: 2013Q1

REPORT INFORMATION
  Report Type: Spontaneous
  Country: GB (occurrence: GB)
  Receive Date: 20130104
  Receipt Date: 20130104
  Transmission Date: 20140127
  Serious: Yes (Other)
  Sender: FDA-Public Use
  Company Number: GB-SANOFI-AVENTIS-2013SA000534

PATIENT
  Age: 52 Year
  Sex: Male

DRUGS (4)
  1. OXALIPLATIN [Suspect]
     Indication: CHEMOTHERAPY
     Route: 065
  2. IRINOTECAN [Suspect]
     Indication: CHEMOTHERAPY
     Route: 065
  3. FLUOROURACIL [Suspect]
     Indication: CHEMOTHERAPY
     Route: 065
  4. FOLINIC ACID [Suspect]
     Indication: CHEMOTHERAPY
     Route: 065

REACTIONS (1)
  - Myocardial infarction [Recovered/Resolved]
